FAERS Safety Report 8585630 (Version 22)
Quarter: 2015Q1

REPORT INFORMATION
  Report Type: Spontaneous
  Country: US (occurrence: US)
  Receive Date: 20120530
  Receipt Date: 20150326
  Transmission Date: 20150721
  Serious: Yes (Hospitalization, Other)
  Sender: FDA-Public Use
  Company Number: US-GLAXOSMITHKLINE-A0943766A

PATIENT

DRUGS (19)
  1. FLOLAN [Suspect]
     Active Substance: EPOPROSTENOL SODIUM
     Dosage: UNK
     Dates: start: 20050222
  2. FLOLAN [Suspect]
     Active Substance: EPOPROSTENOL SODIUM
     Dosage: 35 NG/KG/MIN, CO
     Dates: start: 20050222
  3. REVATIO [Suspect]
     Active Substance: SILDENAFIL CITRATE
     Indication: PRODUCT USED FOR UNKNOWN INDICATION
     Route: 065
  4. IMODIUM [Concomitant]
     Active Substance: LOPERAMIDE HYDROCHLORIDE
     Route: 065
  5. FLOLAN [Suspect]
     Active Substance: EPOPROSTENOL SODIUM
     Indication: PULMONARY ARTERIAL HYPERTENSION
     Dosage: 40 NG/KG/MIN CONTINUOUSLY
     Route: 042
     Dates: start: 20050222
  6. FLOLAN [Suspect]
     Active Substance: EPOPROSTENOL SODIUM
     Dosage: UNK
     Dates: start: 2005, end: 201502
  7. LETAIRIS [Suspect]
     Active Substance: AMBRISENTAN
     Indication: PRODUCT USED FOR UNKNOWN INDICATION
     Route: 065
  8. FLOLAN [Suspect]
     Active Substance: EPOPROSTENOL SODIUM
     Dosage: UNK
     Dates: start: 20050222
  9. FLOLAN [Suspect]
     Active Substance: EPOPROSTENOL SODIUM
     Dosage: UNK
  10. FLOLAN [Suspect]
     Active Substance: EPOPROSTENOL SODIUM
     Dosage: UNK
     Dates: start: 20050308
  11. LASIX [Concomitant]
     Active Substance: FUROSEMIDE
     Indication: PRODUCT USED FOR UNKNOWN INDICATION
     Route: 065
  12. FLOLAN [Suspect]
     Active Substance: EPOPROSTENOL SODIUM
     Dosage: UNK
     Dates: start: 20050222
  13. FLOLAN [Suspect]
     Active Substance: EPOPROSTENOL SODIUM
     Dosage: UNK
     Dates: start: 20050222
  14. FLOLAN [Suspect]
     Active Substance: EPOPROSTENOL SODIUM
     Dosage: UNK
     Dates: start: 20050222
  15. FLOLAN [Suspect]
     Active Substance: EPOPROSTENOL SODIUM
     Dosage: UNK
     Dates: start: 20050222
  16. ADEMPAS [Concomitant]
     Active Substance: RIOCIGUAT
  17. FLOLAN [Suspect]
     Active Substance: EPOPROSTENOL SODIUM
     Dosage: UNK
     Dates: start: 20050222
  18. FLOLAN [Suspect]
     Active Substance: EPOPROSTENOL SODIUM
     Dosage: UNK
  19. FLOLAN [Suspect]
     Active Substance: EPOPROSTENOL SODIUM
     Dosage: 57 NG/KG/MIN CONTINUOUSLY; CONCENTRATION: 90,000 NG/ML; PUMP RATE: 82 ML/DAY; VIAL STRENGTH: 1.5 MG
     Route: 042
     Dates: start: 20050309

REACTIONS (28)
  - Oedema [Unknown]
  - Dyspepsia [Unknown]
  - Nasal congestion [Unknown]
  - Pulmonary arterial hypertension [Unknown]
  - Pain in jaw [Not Recovered/Not Resolved]
  - Abdominal distension [Unknown]
  - Erythema [Unknown]
  - Gastrointestinal disorder [Unknown]
  - Rash pruritic [Unknown]
  - Peripheral swelling [Unknown]
  - Nervousness [Unknown]
  - Cough [Unknown]
  - Dyspnoea [Unknown]
  - Catheterisation cardiac [Unknown]
  - Flushing [Unknown]
  - Weight increased [Unknown]
  - Lung transplant [Unknown]
  - Diarrhoea [Unknown]
  - Swelling [Unknown]
  - Rhinorrhoea [Unknown]
  - Ascites [Not Recovered/Not Resolved]
  - Dermatitis contact [Unknown]
  - Urticaria [Unknown]
  - Fluid retention [Unknown]
  - Rash [Not Recovered/Not Resolved]
  - Infertility female [Unknown]
  - Nasopharyngitis [Unknown]
  - Hospitalisation [Unknown]

NARRATIVE: CASE EVENT DATE: 2013
